FAERS Safety Report 7086102-2 (Version None)
Quarter: 2010Q4

REPORT INFORMATION
  Report Type: 
  Country: None (occurrence: None)
  Receive Date: 20101105
  Receipt Date: 20101027
  Transmission Date: 20110411
  Serious: Yes (Hospitalization)
  Sender: FDA-Public Use
  Company Number: B0596379A

PATIENT
  Age: 66 Year
  Sex: Female
  Weight: 90 kg

DRUGS (7)
  1. BUPROPION HCL [Suspect]
     Indication: BIPOLAR DISORDER
     Dosage: 150MG PER DAY
     Route: 065
     Dates: start: 20090307, end: 20090326
  2. CIPRALEX [Concomitant]
     Indication: PRODUCT USED FOR UNKNOWN INDICATION
     Dosage: 20MG PER DAY
     Route: 065
     Dates: start: 20090216
  3. TEGRETOL [Concomitant]
     Dosage: 400MG PER DAY
     Route: 065
     Dates: start: 20090216
  4. EDRONAX [Concomitant]
     Dosage: 8MG PER DAY
     Route: 065
     Dates: start: 20090217, end: 20090404
  5. NORVASC [Concomitant]
     Dosage: 5MG PER DAY
     Route: 065
     Dates: start: 20090320
  6. FOSICOMB [Concomitant]
     Dates: start: 20090216
  7. LOVENOX [Concomitant]
     Dosage: 20MG PER DAY
     Dates: start: 20090323, end: 20090408

REACTIONS (3)
  - BODY DYSMORPHIC DISORDER [None]
  - DELUSION [None]
  - SOCIAL AVOIDANT BEHAVIOUR [None]
